FAERS Safety Report 21369709 (Version 1)
Quarter: 2022Q3

REPORT INFORMATION
  Report Type: Spontaneous
  Country: GB (occurrence: GB)
  Receive Date: 20220923
  Receipt Date: 20220923
  Transmission Date: 20221027
  Serious: Yes (Hospitalization, Other)
  Sender: FDA-Public Use
  Company Number: None

PATIENT

DRUGS (6)
  1. IBUPROFEN [Suspect]
     Active Substance: IBUPROFEN
     Indication: Back pain
     Dosage: 1.6 G, BID
  2. BECLOMETHASONE\FORMOTEROL [Concomitant]
     Active Substance: BECLOMETHASONE\FORMOTEROL
     Indication: Product used for unknown indication
     Dosage: 2 DF, BID, 100MICROGRAMS/DOSE /6MICROGRAMS/DOSE INHALER TWO PUFFS TO BE INHALED TWICE A DAY VIA SPAC
     Route: 055
  3. BUPRENORPHINE [Concomitant]
     Active Substance: BUPRENORPHINE
     Indication: Product used for unknown indication
     Dosage: 5 ?G
     Route: 062
  4. LANSOPRAZOLE [Concomitant]
     Active Substance: LANSOPRAZOLE
     Indication: Product used for unknown indication
     Dosage: 30 MG, QD, ONE DAILY ONLY IF TAKES IBUPROFEN
  5. VENTOLIN [Concomitant]
     Active Substance: ALBUTEROL SULFATE
     Indication: Product used for unknown indication
     Dosage: 100MICROGRAMS/DOSE EVOHALER ONE OR TWO PUFFS TO BEINHALED UP TO FOUR TIMES A DAY - PRN
     Route: 055
  6. SPIRIVA [Concomitant]
     Active Substance: TIOTROPIUM BROMIDE MONOHYDRATE
     Indication: Product used for unknown indication
     Dosage: 5 ?G, QD, 2.5MICROGRAMS/DOSE INHALATION SOLUTION CARTRIDGE WITHDEVICE TWO PUFFS TO BE INHALED ONCE D
     Route: 055

REACTIONS (3)
  - Transient ischaemic attack [Recovering/Resolving]
  - Overdose [Unknown]
  - Muscular weakness [Unknown]
